FAERS Safety Report 9510017 (Version 1)
Quarter: 2013Q3

REPORT INFORMATION
  Report Type: Spontaneous
  Country: US (occurrence: US)
  Receive Date: 20130909
  Receipt Date: 20130909
  Transmission Date: 20140515
  Serious: Yes (Other)
  Sender: FDA-Public Use
  Company Number: US-ELI_LILLY_AND_COMPANY-US201308009954

PATIENT
  Sex: Male

DRUGS (3)
  1. ZYPREXA RELPREVV [Suspect]
     Dosage: 405 MG, UNKNOWN
     Route: 065
  2. ZYPREXA RELPREVV [Suspect]
     Dosage: UNK, UNKNOWN
     Route: 065
     Dates: start: 201303
  3. HALDOL                             /00027401/ [Concomitant]
     Dosage: UNK, UNKNOWN
     Route: 065

REACTIONS (1)
  - Irritability [Unknown]
